FAERS Safety Report 25990242 (Version 1)
Quarter: 2025Q4

REPORT INFORMATION
  Report Type: Spontaneous
  Country: CN (occurrence: CN)
  Receive Date: 20251103
  Receipt Date: 20251103
  Transmission Date: 20260117
  Serious: Yes (Hospitalization, Other)
  Sender: PFIZER
  Company Number: CN-PFIZER INC-PV202500127192

PATIENT
  Age: 61 Year
  Sex: Male

DRUGS (3)
  1. XYNTHA [Suspect]
     Active Substance: MOROCTOCOG ALFA
     Indication: Factor VIII deficiency
     Dosage: UNK, 2X/WEEK
  2. XYNTHA [Suspect]
     Active Substance: MOROCTOCOG ALFA
     Dosage: UNK
     Route: 040
  3. XYNTHA [Suspect]
     Active Substance: MOROCTOCOG ALFA
     Dosage: 1000 IU
     Route: 040

REACTIONS (13)
  - Haemarthrosis [Unknown]
  - Muscle haemorrhage [Unknown]
  - Subcutaneous haematoma [Unknown]
  - Haemophilic arthropathy [Unknown]
  - Haemoptysis [Unknown]
  - Pulmonary tuberculosis [Unknown]
  - Gingival bleeding [Unknown]
  - Haematuria [Unknown]
  - Iron deficiency anaemia [Unknown]
  - Musculoskeletal chest pain [Unknown]
  - Chest pain [Unknown]
  - Cough [Unknown]
  - Productive cough [Unknown]

NARRATIVE: CASE EVENT DATE: 20240716
